FAERS Safety Report 6704071-9 (Version None)
Quarter: 2010Q2

REPORT INFORMATION
  Report Type: 
  Country: None (occurrence: None)
  Receive Date: 20100430
  Receipt Date: 20100318
  Transmission Date: 20101027
  Serious: No
  Sender: FDA-Public Use
  Company Number: US-BAYER-201017224NA

PATIENT
  Age: 70 Year
  Sex: Male

DRUGS (3)
  1. CAMPATH [Suspect]
     Indication: CHRONIC LYMPHOCYTIC LEUKAEMIA
     Dates: start: 20100222
  2. CAMPATH [Suspect]
     Dosage: AS USED: 30 MG
     Dates: start: 20100226, end: 20100226
  3. CAMPATH [Suspect]
     Dosage: TOTAL DAILY DOSE: 20 MG
     Dates: start: 20100201

REACTIONS (1)
  - CHILLS [None]
